FAERS Safety Report 17764913 (Version 2)
Quarter: 2020Q4

REPORT INFORMATION
  Report Type: Other
  Country: CZ (occurrence: CZ)
  Receive Date: 20200511
  Receipt Date: 20201117
  Transmission Date: 20210113
  Serious: Yes (Hospitalization)
  Sender: FDA-Public Use
  Company Number: CZ-ROCHE-2590274

PATIENT
  Age: 67 Year
  Sex: Male

DRUGS (13)
  1. MERONEM [Concomitant]
     Active Substance: MEROPENEM
     Dosage: 2 G + PHYSIOLOGICAL SALINE SOLUTION 100 ML/30 MIN
  2. FOLIC ACID. [Concomitant]
     Active Substance: FOLIC ACID
     Route: 048
  3. KALNORMIN [Concomitant]
     Active Substance: POTASSIUM CHLORIDE
     Route: 048
  4. POLATUZUMAB VEDOTIN. [Suspect]
     Active Substance: POLATUZUMAB VEDOTIN
     Indication: DIFFUSE LARGE B-CELL LYMPHOMA REFRACTORY
     Route: 042
     Dates: start: 20200204, end: 20200622
  5. RITUXIMAB. [Suspect]
     Active Substance: RITUXIMAB
     Indication: DIFFUSE LARGE B-CELL LYMPHOMA REFRACTORY
     Route: 041
     Dates: start: 20200204, end: 20200622
  6. HELICID [Concomitant]
     Active Substance: OMEPRAZOLE
     Route: 048
  7. CITALOPRAM [Concomitant]
     Active Substance: CITALOPRAM HYDROBROMIDE
     Route: 048
  8. BISEPTOL [Concomitant]
     Active Substance: SULFAMETHOXAZOLE\TRIMETHOPRIM
     Route: 048
  9. ZARZIO [Concomitant]
     Active Substance: FILGRASTIM
     Dosage: 48 MIU SC INJ 1XD AT 12:00
     Route: 058
  10. BENDAMUSTINE [Suspect]
     Active Substance: BENDAMUSTINE
     Indication: DIFFUSE LARGE B-CELL LYMPHOMA REFRACTORY
     Route: 042
     Dates: start: 20200204, end: 20200622
  11. ABELCET [Concomitant]
     Active Substance: AMPHOTERICIN B\DIMYRISTOYLPHOSPHATIDYLCHOLINE, DL-\DIMYRISTOYLPHOSPHATIDYLGLYCEROL, DL-
     Dosage: 400 MG + GLU 5%500 ML/6HR
     Dates: start: 20200309
  12. VALACICLOVIR [Concomitant]
     Active Substance: VALACYCLOVIR HYDROCHLORIDE
     Route: 048
  13. CIPLOX [Concomitant]
     Active Substance: CIPROFLOXACIN
     Route: 048

REACTIONS (2)
  - Cytopenia [Unknown]
  - Bronchopulmonary aspergillosis [Recovering/Resolving]

NARRATIVE: CASE EVENT DATE: 20200303
